FAERS Safety Report 7316454-7 (Version None)
Quarter: 2011Q1

REPORT INFORMATION
  Report Type: 
  Country: None (occurrence: None)
  Receive Date: 20110225
  Receipt Date: 20110216
  Transmission Date: 20110831
  Serious: Yes (Hospitalization)
  Sender: FDA-Public Use
  Company Number: US-ASTRAZENECA-2011SE08934

PATIENT
  Age: 56 Year
  Sex: Female
  Weight: 86.2 kg

DRUGS (7)
  1. METOPROLOL SUCCINATE [Concomitant]
     Indication: HYPERTENSION
  2. AZULFIDINE [Concomitant]
     Indication: ARTHRITIS
  3. NEURONTIN [Concomitant]
     Indication: NEUROPATHY PERIPHERAL
  4. CELEXA [Concomitant]
     Indication: DEPRESSION
  5. BUSPAR [Concomitant]
     Indication: DEPRESSION
  6. SEROQUEL [Suspect]
     Indication: INSOMNIA
     Route: 048
     Dates: start: 20070101
  7. SIMVASTATIN [Concomitant]
     Indication: HYPERCHOLESTEROLAEMIA

REACTIONS (2)
  - COLITIS [None]
  - ANKLE OPERATION [None]
